FAERS Safety Report 21403937 (Version 2)
Quarter: 2022Q4

REPORT INFORMATION
  Report Type: Spontaneous
  Country: US (occurrence: US)
  Receive Date: 20221003
  Receipt Date: 20221116
  Transmission Date: 20230112
  Serious: Yes (Hospitalization)
  Sender: FDA-Public Use
  Company Number: US-GSKCCFUS-Case-01511991_AE-85924

PATIENT
  Sex: Female

DRUGS (1)
  1. NUCALA [Suspect]
     Active Substance: MEPOLIZUMAB
     Indication: Asthma
     Dosage: UNK, ADMINISTRATION SYSTEM
     Dates: start: 2022, end: 2022

REACTIONS (5)
  - Hypersensitivity [Unknown]
  - Swelling face [Recovered/Resolved]
  - Rash [Recovered/Resolved]
  - Dyspnoea [Unknown]
  - Sensitisation [Unknown]

NARRATIVE: CASE EVENT DATE: 20220101
